FAERS Safety Report 20565141 (Version 1)
Quarter: 2022Q1

REPORT INFORMATION
  Report Type: Spontaneous
  Country: US (occurrence: US)
  Receive Date: 20220308
  Receipt Date: 20220308
  Transmission Date: 20220424
  Serious: No
  Sender: FDA-Public Use
  Company Number: US-BAYER-2022A033453

PATIENT
  Sex: Female

DRUGS (1)
  1. MIRALAX [Suspect]
     Active Substance: POLYETHYLENE GLYCOL 3350
     Indication: Bowel movement irregularity
     Dosage: FULL DOSE BASE ON USAGE, TWICE OVER THE PERIOD OF 3 DAYS
     Route: 048
     Dates: end: 20220304

REACTIONS (1)
  - Abdominal distension [Recovered/Resolved]
